FAERS Safety Report 9270742 (Version 2)
Quarter: 2013Q3

REPORT INFORMATION
  Report Type: Spontaneous
  Country: US (occurrence: US)
  Receive Date: 20130503
  Receipt Date: 20130820
  Transmission Date: 20140515
  Serious: No
  Sender: FDA-Public Use
  Company Number: US-PFIZER INC-2013138554

PATIENT
  Age: 73 Year
  Sex: Female
  Weight: 53.5 kg

DRUGS (5)
  1. CHANTIX [Suspect]
     Indication: SMOKING CESSATION THERAPY
     Dosage: 0.5 MG DAILY
     Dates: start: 2011
  2. CHANTIX [Suspect]
     Dosage: 0.5 MG, 2X/DAY
  3. CHANTIX [Suspect]
     Dosage: 1 MG, 2X/DAY
  4. SERTRALINE HCL [Suspect]
     Indication: ANXIETY
     Dosage: 150 MG DAILY
     Dates: start: 2007
  5. ALPRAZOLAM [Suspect]
     Indication: ANXIETY
     Dosage: 0.25 MG DAILY
     Dates: start: 2007

REACTIONS (2)
  - Drug ineffective [Unknown]
  - Anxiety [Recovered/Resolved]
